FAERS Safety Report 18683480 (Version 6)
Quarter: 2022Q3

REPORT INFORMATION
  Report Type: Report from Study
  Country: CA (occurrence: CA)
  Receive Date: 20201230
  Receipt Date: 20220711
  Transmission Date: 20221027
  Serious: Yes (Hospitalization, Other)
  Sender: FDA-Public Use
  Company Number: CA-GLAXOSMITHKLINE-CA2020AMR255562

PATIENT

DRUGS (18)
  1. VALACYCLOVIR HYDROCHLORIDE [Suspect]
     Active Substance: VALACYCLOVIR HYDROCHLORIDE
     Indication: Prophylaxis against transplant rejection
     Dosage: UNK
     Dates: start: 20200915
  2. ROSUVASTATIN [Concomitant]
     Active Substance: ROSUVASTATIN
     Indication: Dyslipidaemia
     Dosage: UNK
     Dates: start: 2008
  3. ZOPICLONE [Concomitant]
     Active Substance: ZOPICLONE
     Indication: Insomnia
     Dosage: UNK
     Dates: start: 2013
  4. TAFAMIDIS MEGLUMINE [Suspect]
     Active Substance: TAFAMIDIS MEGLUMINE
     Indication: Cardiac amyloidosis
     Dosage: 61 MG, QD
     Route: 048
     Dates: start: 20190517
  5. BUSULFAN [Suspect]
     Active Substance: BUSULFAN
     Indication: Surgical preconditioning
     Dosage: 4 MG/KG, QD
     Route: 048
     Dates: start: 20200915, end: 20200921
  6. FLUDARABINE [Suspect]
     Active Substance: FLUDARABINE PHOSPHATE
     Indication: Surgical preconditioning
     Dosage: 40MG/SQM
     Route: 042
     Dates: start: 20200915, end: 20200921
  7. ZOPICLONE [Suspect]
     Active Substance: ZOPICLONE
  8. AMIODARONE [Suspect]
     Active Substance: AMIODARONE
  9. MICAFUNGIN SODIUM [Suspect]
     Active Substance: MICAFUNGIN SODIUM
  10. ROSUVASTATIN CALCIUM [Suspect]
     Active Substance: ROSUVASTATIN CALCIUM
  11. CYCLOSPORINE [Suspect]
     Active Substance: CYCLOSPORINE
  12. PENTAMIDINE [Suspect]
     Active Substance: PENTAMIDINE
  13. GABAPENTIN [Suspect]
     Active Substance: GABAPENTIN
  14. CYCLOSPORINE [Concomitant]
     Active Substance: CYCLOSPORINE
     Indication: Prophylaxis against transplant rejection
     Dosage: UNK
     Dates: start: 20200921
  15. MICAFUNGIN [Concomitant]
     Active Substance: MICAFUNGIN
     Indication: Prophylaxis against transplant rejection
     Dosage: UNK
     Dates: start: 20200915
  16. PENTAMIDINE [Concomitant]
     Active Substance: PENTAMIDINE
     Indication: Prophylaxis against transplant rejection
     Dosage: UNK
     Dates: start: 20200915
  17. AMIODARONE [Concomitant]
     Active Substance: AMIODARONE
     Indication: Atrial fibrillation
     Dosage: UNK
     Dates: start: 2020
  18. GABAPENTIN [Concomitant]
     Active Substance: GABAPENTIN
     Indication: Insomnia
     Dosage: UNK
     Dates: start: 2020

REACTIONS (10)
  - Sepsis [Recovered/Resolved with Sequelae]
  - Atrial fibrillation [Unknown]
  - Cardiac failure [Unknown]
  - Pyrexia [Recovering/Resolving]
  - Blood culture positive [Recovering/Resolving]
  - Insomnia [Unknown]
  - Spinal stenosis [Unknown]
  - Intervertebral disc protrusion [Unknown]
  - Hyperlipidaemia [Unknown]
  - Atrial flutter [Unknown]

NARRATIVE: CASE EVENT DATE: 20201004
